FAERS Safety Report 13568393 (Version 1)
Quarter: 2017Q2

REPORT INFORMATION
  Report Type: Spontaneous
  Country: BR (occurrence: BR)
  Receive Date: 20170522
  Receipt Date: 20170522
  Transmission Date: 20170830
  Serious: Yes (Hospitalization, Disabling, Other)
  Sender: FDA-Public Use
  Company Number: BR-009507513-1609BRA009638

PATIENT
  Age: 27 Year
  Sex: Female
  Weight: 51 kg

DRUGS (4)
  1. NUVARING [Suspect]
     Active Substance: ETHINYL ESTRADIOL\ETONOGESTREL
     Indication: POLYCYSTIC OVARIES
     Dosage: 3 WEEKS WITH VAGINAL RING AND ONE WEEK FOR FREE INTERVAL
     Route: 067
     Dates: start: 20160522, end: 20160612
  2. NUVARING [Suspect]
     Active Substance: ETHINYL ESTRADIOL\ETONOGESTREL
     Dosage: 3 WEEKS WITH VAGINAL RING AND ONE WEEK FOR FREE INTERVAL
     Route: 067
     Dates: start: 20160717, end: 20160807
  3. NUVARING [Suspect]
     Active Substance: ETHINYL ESTRADIOL\ETONOGESTREL
     Dosage: 3 WEEKS WITH VAGINAL RING AND ONE WEEK FOR FREE INTERVAL
     Route: 067
     Dates: start: 20160619, end: 20160710
  4. NUVARING [Suspect]
     Active Substance: ETHINYL ESTRADIOL\ETONOGESTREL
     Indication: CONTRACEPTION
     Dosage: 3 WEEKS WITH VAGINAL RING AND ONE WEEK FOR FREE INTERVAL
     Route: 067
     Dates: start: 201601, end: 201604

REACTIONS (20)
  - Pelvic pain [Unknown]
  - Dysmenorrhoea [Unknown]
  - Asthenia [Unknown]
  - Pregnancy with contraceptive device [Unknown]
  - Unintended pregnancy [Unknown]
  - Abnormal withdrawal bleeding [Not Recovered/Not Resolved]
  - Somnolence [Unknown]
  - Abnormal withdrawal bleeding [Recovered/Resolved]
  - Dizziness [Unknown]
  - Vaginal haemorrhage [Recovered/Resolved]
  - Off label use [Unknown]
  - Foreign body [Unknown]
  - Foreign body [Unknown]
  - Pelvic pain [Unknown]
  - Pain [Unknown]
  - Pelvic pain [Unknown]
  - Pain [Unknown]
  - Foreign body [Unknown]
  - Muscle spasms [Recovered/Resolved]
  - Abnormal withdrawal bleeding [Unknown]

NARRATIVE: CASE EVENT DATE: 2016
